FAERS Safety Report 5004539-X (Version None)
Quarter: 2006Q2

REPORT INFORMATION
  Report Type: 
  Country: None (occurrence: None)
  Receive Date: 20060511
  Receipt Date: 20060504
  Transmission Date: 20061013
  Serious: Yes (Death, Life-Threatening, Hospitalization)
  Sender: FDA-Public Use
  Company Number: 2006-04-0834

PATIENT
  Age: 68 Year
  Sex: Male
  Weight: 104 kg

DRUGS (3)
  1. TEMODAR [Suspect]
     Indication: GLIOMA
     Dosage: SEE IMAGE
     Route: 048
     Dates: start: 20060112, end: 20060223
  2. TEMODAR [Suspect]
     Indication: GLIOMA
     Dosage: SEE IMAGE
     Route: 048
     Dates: start: 20060322, end: 20060326
  3. RADIATION THERAPY [Suspect]
     Indication: GLIOMA
     Dosage: 5400 CGY
     Dates: start: 20060112, end: 20060223

REACTIONS (10)
  - BODY TEMPERATURE INCREASED [None]
  - BRAIN OEDEMA [None]
  - CENTRAL NERVOUS SYSTEM INFECTION [None]
  - CHEYNE-STOKES RESPIRATION [None]
  - CONFUSIONAL STATE [None]
  - DIFFICULTY IN WALKING [None]
  - ENCEPHALITIS [None]
  - HERPES SIMPLEX [None]
  - MENTAL STATUS CHANGES [None]
  - SPEECH DISORDER [None]
